FAERS Safety Report 14676275 (Version 1)
Quarter: 2018Q1

REPORT INFORMATION
  Report Type: Spontaneous
  Country: US (occurrence: US)
  Receive Date: 20180323
  Receipt Date: 20180323
  Transmission Date: 20180509
  Serious: No
  Sender: FDA-Public Use
  Company Number: None

PATIENT
  Age: 59 Year
  Sex: Female
  Weight: 52.16 kg

DRUGS (4)
  1. FLONASE [Suspect]
     Active Substance: FLUTICASONE PROPIONATE
  2. CALCIUM [Concomitant]
     Active Substance: CALCIUM
  3. MULTIVITAMIN [Concomitant]
     Active Substance: VITAMINS
  4. XANAX [Concomitant]
     Active Substance: ALPRAZOLAM

REACTIONS (6)
  - Depression [None]
  - Nervousness [None]
  - Blood pressure increased [None]
  - Adrenal disorder [None]
  - Anxiety [None]
  - Paraesthesia [None]

NARRATIVE: CASE EVENT DATE: 201711
